FAERS Safety Report 19653579 (Version 1)
Quarter: 2021Q3

REPORT INFORMATION
  Report Type: Report from Study
  Country: CA (occurrence: CA)
  Receive Date: 20210804
  Receipt Date: 20210804
  Transmission Date: 20211014
  Serious: Yes (Other)
  Sender: FDA-Public Use
  Company Number: CA-JNJFOC-20210239833

PATIENT
  Age: 72 Year
  Sex: Female
  Weight: 89 kg

DRUGS (9)
  1. REMICADE [Suspect]
     Active Substance: INFLIXIMAB
     Indication: COLITIS ULCERATIVE
     Route: 042
     Dates: start: 202012
  2. SOLU?CORTEF [Concomitant]
     Active Substance: HYDROCORTISONE SODIUM SUCCINATE
     Indication: PREMEDICATION
     Route: 042
     Dates: start: 20210222
  3. TYLENOL [Concomitant]
     Active Substance: ACETAMINOPHEN
     Indication: PREMEDICATION
     Route: 048
     Dates: start: 20210222
  4. REMICADE [Suspect]
     Active Substance: INFLIXIMAB
     Route: 042
     Dates: start: 202012
  5. REMICADE [Suspect]
     Active Substance: INFLIXIMAB
     Dosage: ON 14?JUN?2021, THE PATIENT RECEIVED 4TH INFLIXIMAB INFUSION FOR DOSE OF 395MG ONCE IN 6 WEEK. ON 28
     Route: 042
     Dates: start: 20210125
  6. TYLENOL [Concomitant]
     Active Substance: ACETAMINOPHEN
     Route: 048
     Dates: start: 20210728
  7. SOLU?CORTEF [Concomitant]
     Active Substance: HYDROCORTISONE SODIUM SUCCINATE
     Route: 042
     Dates: start: 20210728
  8. BENADRYL [Concomitant]
     Active Substance: DIPHENHYDRAMINE HYDROCHLORIDE
     Route: 042
     Dates: start: 20210728
  9. BENADRYL [Concomitant]
     Active Substance: DIPHENHYDRAMINE HYDROCHLORIDE
     Indication: PREMEDICATION
     Route: 042
     Dates: start: 20210222

REACTIONS (20)
  - Chills [Recovered/Resolved]
  - Asthenia [Unknown]
  - Palpitations [Recovered/Resolved]
  - Diarrhoea haemorrhagic [Unknown]
  - Haematochezia [Not Recovered/Not Resolved]
  - Tremor [Recovered/Resolved]
  - Fatigue [Unknown]
  - Sciatica [Recovering/Resolving]
  - Incorrect drug administration rate [Unknown]
  - Skin discolouration [Unknown]
  - Off label use [Unknown]
  - Myalgia [Recovered/Resolved]
  - Skin warm [Unknown]
  - Arthralgia [Recovered/Resolved]
  - Abdominal pain [Recovering/Resolving]
  - Infusion related reaction [Unknown]
  - Dysuria [Unknown]
  - Restless legs syndrome [Recovered/Resolved]
  - Diarrhoea [Recovering/Resolving]
  - Defaecation urgency [Recovering/Resolving]

NARRATIVE: CASE EVENT DATE: 2020
